FAERS Safety Report 6793034-3 (Version None)
Quarter: 2010Q2

REPORT INFORMATION
  Report Type: 
  Country: None (occurrence: None)
  Receive Date: 20100624
  Receipt Date: 20081114
  Transmission Date: 20101027
  Serious: Yes (Other)
  Sender: FDA-Public Use
  Company Number: US-PFIZER INC-2008096973

PATIENT
  Sex: Male
  Weight: 56.7 kg

DRUGS (6)
  1. XALATAN [Suspect]
     Indication: GLAUCOMA
     Route: 047
     Dates: start: 20080801
  2. OXYCODONE HCL [Concomitant]
  3. DIAZEPAM [Concomitant]
  4. LYRICA [Concomitant]
  5. SERTRALINE HCL [Concomitant]
  6. FLURAZEPAM [Concomitant]

REACTIONS (2)
  - ANGINA PECTORIS [None]
  - MYALGIA [None]
